FAERS Safety Report 17540551 (Version 1)
Quarter: 2020Q1

REPORT INFORMATION
  Report Type: Spontaneous
  Country: US (occurrence: US)
  Receive Date: 20200313
  Receipt Date: 20200313
  Transmission Date: 20200409
  Serious: Yes (Death, Other)
  Sender: FDA-Public Use
  Company Number: US-GILEAD-2020-0454741

PATIENT
  Sex: Female

DRUGS (1)
  1. TRUVADA [Suspect]
     Active Substance: EMTRICITABINE\TENOFOVIR DISOPROXIL FUMARATE
     Indication: HIV INFECTION
     Dosage: UNK
     Route: 048
     Dates: start: 2014, end: 2017

REACTIONS (11)
  - Tooth loss [Unknown]
  - Osteoarthritis [Unknown]
  - Economic problem [Not Recovered/Not Resolved]
  - Chronic kidney disease [Unknown]
  - Emotional distress [Unknown]
  - Anhedonia [Unknown]
  - Osteopenia [Unknown]
  - Tooth fracture [Unknown]
  - Death [Fatal]
  - Acute kidney injury [Unknown]
  - Anxiety [Unknown]

NARRATIVE: CASE EVENT DATE: 20190324
